FAERS Safety Report 6160357-0 (Version None)
Quarter: 2009Q2

REPORT INFORMATION
  Report Type: 
  Country: None (occurrence: None)
  Receive Date: 20090415
  Receipt Date: 20090415
  Transmission Date: 20091009
  Serious: Yes (Other)
  Sender: FDA-Public Use
  Company Number: None

PATIENT
  Age: 9 Year
  Sex: Male
  Weight: 29.4838 kg

DRUGS (1)
  1. SINGULAIR [Suspect]
     Indication: ASTHMA EXERCISE INDUCED
     Dosage: 1 TABLET DAILY PO
     Route: 048
     Dates: start: 20081001, end: 20090325

REACTIONS (6)
  - ANXIETY [None]
  - CRYING [None]
  - DEPRESSED MOOD [None]
  - DRY MOUTH [None]
  - EDUCATIONAL PROBLEM [None]
  - INSOMNIA [None]
